FAERS Safety Report 8886157 (Version 7)
Quarter: 2013Q4

REPORT INFORMATION
  Report Type: Spontaneous
  Country: US (occurrence: US)
  Receive Date: 20121105
  Receipt Date: 20131119
  Transmission Date: 20140711
  Serious: Yes (Hospitalization, Disabling, Other)
  Sender: FDA-Public Use
  Company Number: US-009507513-1201USA00785

PATIENT
  Sex: Female
  Weight: 74.97 kg

DRUGS (7)
  1. FOSAMAX [Suspect]
     Indication: OSTEOPOROSIS
     Dosage: 70 MG, UNK
     Route: 048
     Dates: start: 2002, end: 20081205
  2. FOSAMAX PLUS D [Suspect]
     Indication: OSTEOPOROSIS
     Dosage: 70-2800 MG, QW
     Route: 048
     Dates: start: 20070615, end: 20081205
  3. ALENDRONATE SODIUM [Suspect]
     Indication: OSTEOPOROSIS
     Dosage: 70 MG, UNK
     Route: 048
     Dates: start: 20081222, end: 20091207
  4. FORTEO [Concomitant]
     Indication: OSTEOPOROSIS
     Dosage: UNK
     Dates: start: 200311
  5. PRAVACHOL [Concomitant]
     Indication: HYPERCHOLESTEROLAEMIA
     Dosage: UNK
  6. SYNTHROID [Concomitant]
     Indication: HYPOTHYROIDISM
     Dosage: UNK
     Dates: start: 1973
  7. SYNTHROID [Concomitant]
     Indication: HYPOPARATHYROIDISM

REACTIONS (25)
  - Femur fracture [Recovered/Resolved]
  - Femur fracture [Recovering/Resolving]
  - Open reduction of fracture [Unknown]
  - Open reduction of fracture [Unknown]
  - Pelvic fracture [Unknown]
  - Low turnover osteopathy [Not Recovered/Not Resolved]
  - Fall [Unknown]
  - Fall [Unknown]
  - Fall [Unknown]
  - Vitamin D deficiency [Unknown]
  - Hand fracture [Unknown]
  - Patella fracture [Unknown]
  - Synovitis [Unknown]
  - Rib fracture [Unknown]
  - Contusion [Unknown]
  - Fall [Unknown]
  - Gastroenteritis [Recovering/Resolving]
  - Contusion [Unknown]
  - Large intestine polyp [Unknown]
  - Hyperlipidaemia [Unknown]
  - Gastrooesophageal reflux disease [Unknown]
  - Pain in extremity [Unknown]
  - Constipation [Unknown]
  - Drug ineffective [Unknown]
  - Back pain [Unknown]
